FAERS Safety Report 11432071 (Version 2)
Quarter: 2015Q4

REPORT INFORMATION
  Report Type: Spontaneous
  Country: CA (occurrence: CA)
  Receive Date: 20150828
  Receipt Date: 20151027
  Transmission Date: 20160304
  Serious: Yes (Hospitalization, Other)
  Sender: FDA-Public Use
  Company Number: CA-CONCORDIA PHARMACEUTICALS INC.-CO-PL-CA-2015-171

PATIENT
  Age: 61 Year
  Sex: Male

DRUGS (4)
  1. SULFASALAZINE. [Concomitant]
     Active Substance: SULFASALAZINE
  2. REMICADE [Concomitant]
     Active Substance: INFLIXIMAB
  3. PLAQUENIL [Suspect]
     Active Substance: HYDROXYCHLOROQUINE SULFATE
     Indication: RHEUMATOID ARTHRITIS
     Route: 048
  4. METHOTREXATE [Concomitant]
     Active Substance: METHOTREXATE

REACTIONS (8)
  - Gait disturbance [Unknown]
  - Unevaluable event [Unknown]
  - Knee arthroplasty [Unknown]
  - Malaise [Unknown]
  - Thrombosis [Unknown]
  - Bone pain [Unknown]
  - Arthralgia [Unknown]
  - Sensory loss [Unknown]

NARRATIVE: CASE EVENT DATE: 201401
